FAERS Safety Report 4560348-7 (Version None)
Quarter: 2005Q1

REPORT INFORMATION
  Report Type: 
  Country: None (occurrence: None)
  Receive Date: 20050118
  Receipt Date: 20040713
  Transmission Date: 20050727
  Serious: Yes (Other)
  Sender: FDA-Public Use
  Company Number: HQWYE095414JUL04

PATIENT
  Age: 63 Year
  Sex: Female

DRUGS (5)
  1. PREMPRO [Suspect]
     Dates: start: 19970301, end: 19990101
  2. ESTRACE [Suspect]
     Dates: start: 19990101, end: 19990201
  3. PREMPRO (CONJUGATED E [Suspect]
     Dates: start: 19990301, end: 20021101
  4. MEDROXYPROGESTERONE ACETATE [Suspect]
     Dates: start: 19970201, end: 19970301
  5. PREMARIN [Suspect]
     Dates: start: 19800101, end: 19970101

REACTIONS (1)
  - PULMONARY EMBOLISM [None]
